FAERS Safety Report 26184252 (Version 1)
Quarter: 2025Q4

REPORT INFORMATION
  Report Type: Spontaneous
  Country: IN (occurrence: IN)
  Receive Date: 20251222
  Receipt Date: 20251222
  Transmission Date: 20260118
  Serious: Yes (Hospitalization)
  Sender: UNICHEM
  Company Number: IN-UNICHEM LABORATORIES LIMITED-UCM202411-001549

PATIENT

DRUGS (8)
  1. DONEPEZIL [Suspect]
     Active Substance: DONEPEZIL
     Indication: Schizophrenia
     Dosage: 5,MILLIGRAM,QD
     Route: 048
     Dates: start: 202303, end: 202407
  2. MEMANTINE [Suspect]
     Active Substance: MEMANTINE
     Indication: Cognitive disorder
     Dosage: 5 MILLIGRAM
     Route: 048
     Dates: start: 202307, end: 202407
  3. OLANZAPINE [Concomitant]
     Active Substance: OLANZAPINE
     Indication: Delusion
     Dosage: 2.5 MILLIGRAM
     Route: 065
     Dates: start: 202005
  4. OLANZAPINE [Concomitant]
     Active Substance: OLANZAPINE
     Indication: Hallucination
     Dosage: 5 MILLIGRAM
     Route: 065
     Dates: start: 202007
  5. OLANZAPINE [Concomitant]
     Active Substance: OLANZAPINE
     Dosage: 7.5 MILLIGRAM
     Route: 065
     Dates: start: 202010
  6. OLANZAPINE [Concomitant]
     Active Substance: OLANZAPINE
     Dosage: 5 MILLIGRAM
     Route: 065
     Dates: start: 202110
  7. OLANZAPINE [Concomitant]
     Active Substance: OLANZAPINE
     Dosage: 2.5 MILLIGRAM
     Route: 065
     Dates: start: 202210
  8. OLANZAPINE [Concomitant]
     Active Substance: OLANZAPINE
     Dosage: 1.25 MILLIGRAM
     Route: 065
     Dates: start: 202301, end: 202302

REACTIONS (1)
  - Atrioventricular block second degree [Recovered/Resolved]
